FAERS Safety Report 6955162-9 (Version None)
Quarter: 2010Q3

REPORT INFORMATION
  Report Type: 
  Country: None (occurrence: None)
  Receive Date: 20100830
  Receipt Date: 20100819
  Transmission Date: 20110219
  Serious: Yes (Other)
  Sender: FDA-Public Use
  Company Number: AU-ASTRAZENECA-2010SE35867

PATIENT
  Age: 61 Year
  Sex: Male
  Weight: 69.9 kg

DRUGS (2)
  1. SEROQUEL [Suspect]
     Route: 048
     Dates: start: 20040101
  2. LUVOX [Concomitant]

REACTIONS (4)
  - FROSTBITE [None]
  - NAIL PSORIASIS [None]
  - SKIN EXFOLIATION [None]
  - SKIN LESION [None]
